FAERS Safety Report 7865886-7 (Version None)
Quarter: 2011Q4

REPORT INFORMATION
  Report Type: 
  Country: None (occurrence: None)
  Receive Date: 20111028
  Receipt Date: 20110315
  Transmission Date: 20120403
  Serious: No
  Sender: FDA-Public Use
  Company Number: US-GLAXOSMITHKLINE-A0918313A

PATIENT
  Sex: Female

DRUGS (10)
  1. VENTOLIN [Suspect]
     Route: 055
  2. VITAMIN D [Concomitant]
  3. ALBUTEROL [Suspect]
  4. BLOOD PRESSURE MEDICATION [Concomitant]
  5. PREDNISONE [Concomitant]
  6. ADVAIR DISKUS 100/50 [Suspect]
     Indication: BRONCHITIS CHRONIC
     Dosage: 1PUFF TWICE PER DAY
     Route: 055
  7. CALCIUM CARBONATE [Concomitant]
  8. LISINOPRIL [Concomitant]
  9. SPIRIVA [Suspect]
  10. ALENDRONATE SODIUM [Concomitant]

REACTIONS (2)
  - DRUG INTERACTION [None]
  - APHONIA [None]
